FAERS Safety Report 18997887 (Version 1)
Quarter: 2021Q1

REPORT INFORMATION
  Report Type: Spontaneous
  Country: US (occurrence: US)
  Receive Date: 20210311
  Receipt Date: 20210311
  Transmission Date: 20210420
  Serious: No
  Sender: FDA-Public Use
  Company Number: US-TEVA-2021-US-1879934

PATIENT
  Sex: Female
  Weight: 72.57 kg

DRUGS (5)
  1. AUSTEDO [Suspect]
     Active Substance: DEUTETRABENAZINE
     Dosage: 24 MILLIGRAM DAILY;
     Route: 048
  2. VITMAIN D3 [Concomitant]
  3. TURMERIC [Concomitant]
     Active Substance: HERBALS\TURMERIC
  4. VITAMIN C [Concomitant]
     Active Substance: ASCORBIC ACID
  5. AUSTEDO [Suspect]
     Active Substance: DEUTETRABENAZINE
     Indication: TARDIVE DYSKINESIA
     Route: 048
     Dates: start: 2018

REACTIONS (2)
  - Product dose omission issue [Unknown]
  - Feeling abnormal [Unknown]
